FAERS Safety Report 4601069-1 (Version None)
Quarter: 2005Q1

REPORT INFORMATION
  Report Type: 
  Country: None (occurrence: None)
  Receive Date: 20050308
  Receipt Date: 20050224
  Transmission Date: 20050727
  Serious: Yes (Hospitalization)
  Sender: FDA-Public Use
  Company Number: US-JNJFOC-20050206368

PATIENT
  Sex: Male
  Weight: 78.47 kg

DRUGS (4)
  1. REMICADE [Suspect]
     Route: 042
  2. REMICADE [Suspect]
     Indication: CROHN'S DISEASE
     Route: 042
  3. IMURAN [Concomitant]
  4. PREDNISONE TAB [Concomitant]

REACTIONS (5)
  - COMA [None]
  - INFUSION RELATED REACTION [None]
  - LISTERIA ENCEPHALITIS [None]
  - POLYNEUROPATHY [None]
  - VOMITING [None]
